FAERS Safety Report 9551251 (Version 1)
Quarter: 2013Q3

REPORT INFORMATION
  Report Type: Spontaneous
  Country: DE (occurrence: DE)
  Receive Date: 20130925
  Receipt Date: 20130925
  Transmission Date: 20140515
  Serious: Yes (Hospitalization)
  Sender: FDA-Public Use
  Company Number: DE-AMGEN-DEUSP2013066923

PATIENT
  Sex: Male

DRUGS (2)
  1. NEULASTA [Suspect]
     Indication: PROPHYLAXIS
     Dosage: UNK
     Route: 065
  2. JEVTANA [Concomitant]
     Indication: PROSTATE CANCER
     Dosage: UNK

REACTIONS (1)
  - Febrile neutropenia [Unknown]
